FAERS Safety Report 8005470-8 (Version None)
Quarter: 2011Q4

REPORT INFORMATION
  Report Type: 
  Country: None (occurrence: None)
  Receive Date: 20111223
  Receipt Date: 20111215
  Transmission Date: 20120403
  Serious: No
  Sender: FDA-Public Use
  Company Number: US-JNJFOC-20111207697

PATIENT
  Sex: Male
  Weight: 97.52 kg

DRUGS (4)
  1. AMITRIPTYLINE [Concomitant]
     Indication: SLEEP DISORDER THERAPY
     Route: 048
  2. DASATINIB [Concomitant]
     Indication: NEOPLASM MALIGNANT
     Dosage: ONE 100MG AND TWO 20MG ONCE
     Route: 048
     Dates: start: 20110101
  3. PRILOSEC [Concomitant]
     Indication: GASTROOESOPHAGEAL REFLUX DISEASE
     Route: 048
     Dates: start: 20110101
  4. DURAGESIC-100 [Suspect]
     Indication: LEUKAEMIA
     Route: 062
     Dates: start: 20111215

REACTIONS (2)
  - DRUG ADMINISTERED AT INAPPROPRIATE SITE [None]
  - PRODUCT ADHESION ISSUE [None]
